FAERS Safety Report 8409753-9 (Version None)
Quarter: 2012Q2

REPORT INFORMATION
  Report Type: 
  Country: None (occurrence: None)
  Receive Date: 20120529
  Receipt Date: 20120516
  Transmission Date: 20120825
  Serious: Yes (Hospitalization)
  Sender: FDA-Public Use
  Company Number: WAES 1205USA02662

PATIENT
  Age: 48 Year
  Sex: Female

DRUGS (2)
  1. LENALIDOMIDE [Suspect]
     Indication: PERIPHERAL T-CELL LYMPHOMA UNSPECIFIED
     Dosage: 10 MG, DAILY, PO
     Route: 048
  2. CAP VORINOSTAT [Suspect]
     Indication: PERIPHERAL T-CELL LYMPHOMA UNSPECIFIED
     Dosage: 400 MG, DAILY, PO
     Route: 048

REACTIONS (2)
  - LYMPHADENITIS [None]
  - INFECTION [None]
